FAERS Safety Report 8012125 (Version 3)
Quarter: 2012Q4

REPORT INFORMATION
  Report Type: 
  Country: US (occurrence: US)
  Receive Date: 20110628
  Receipt Date: 20121015
  Transmission Date: 20130627
  Serious: Yes (Death)
  Sender: FDA-Public Use
  Company Number: US-BAYER-2011-053612

PATIENT
  Age: 29 Year
  Sex: Female
  Weight: 102.4 kg

DRUGS (18)
  1. YASMIN [Suspect]
     Indication: ACNE
     Dosage: UNK
     Dates: start: 200902, end: 200905
  2. YASMIN [Suspect]
     Indication: CONTRACEPTION
  3. OCELLA [Suspect]
     Indication: CONTRACEPTION
     Dosage: UNK
     Dates: start: 200902, end: 200905
  4. OCELLA [Suspect]
     Indication: ACNE
  5. CITALOPRAM [Concomitant]
     Indication: ANXIETY
     Dosage: 20 to 40 mg Started approximate 1 ? months prior to 03-Feb-2009;
  6. CITALOPRAM [Concomitant]
     Indication: DEPRESSION
  7. IMITREX [Concomitant]
     Indication: MIGRAINE
     Dosage: 100 mg, PRN
  8. TRAMADOL [Concomitant]
     Indication: PAIN
     Dosage: 50 mg to 100 mg
  9. ATIVAN [Concomitant]
     Indication: ANXIETY
     Dosage: 0.5 mg, PRN
  10. IBUPROFEN [Concomitant]
     Indication: PAIN
     Dosage: 600 mg, TID
  11. METHYLPREDNISOLONE [Concomitant]
     Dosage: 4 mg, UNK
  12. CLINDAMYCIN [Concomitant]
     Dosage: 1 %, UNK
  13. ETODOLAC [Concomitant]
     Dosage: 400 mg, UNK
  14. SOMA [Concomitant]
     Indication: MUSCLE SPASMS
     Dosage: 250 mg to 350 mg TID, PRN
  15. MINOCYCLINE [Concomitant]
     Dosage: 50 mg, UNK
  16. ORTHO TRI CYCLEN [Concomitant]
  17. LORAZEPAM [Concomitant]
     Indication: ANXIETY
     Dosage: 0.5 mg, UNK TID PRN
  18. LORAZEPAM [Concomitant]
     Indication: ANXIETY
     Dosage: 1 mg, UNK

REACTIONS (5)
  - Deep vein thrombosis [Fatal]
  - Pulmonary embolism [Fatal]
  - Injury [None]
  - Pain [None]
  - Emotional distress [None]
